FAERS Safety Report 9570757 (Version 1)
Quarter: 2013Q4

REPORT INFORMATION
  Report Type: Spontaneous
  Country: US (occurrence: US)
  Receive Date: 20131001
  Receipt Date: 20131001
  Transmission Date: 20140711
  Serious: Yes (Hospitalization)
  Sender: FDA-Public Use
  Company Number: US-ASTRAZENECA-2013SE71453

PATIENT
  Age: 67 Year
  Sex: Female

DRUGS (7)
  1. CRESTOR [Suspect]
     Route: 048
  2. DEPAKOTE [Concomitant]
  3. ASA [Concomitant]
  4. HCTZ [Concomitant]
  5. METFORMIN [Concomitant]
  6. VESICARE [Concomitant]
  7. HYZAAR [Concomitant]

REACTIONS (1)
  - Rhabdomyolysis [Unknown]
